FAERS Safety Report 4919607-8 (Version None)
Quarter: 2006Q1

REPORT INFORMATION
  Report Type: 
  Country: None (occurrence: None)
  Receive Date: 20060215
  Receipt Date: 20060210
  Transmission Date: 20060701
  Serious: Yes (Hospitalization)
  Sender: FDA-Public Use
  Company Number: FRWYE380510FEB06

PATIENT
  Sex: Female

DRUGS (4)
  1. EFFEXOR [Suspect]
     Indication: DEPRESSION
     Dosage: 200 MG TOTAL DAILY
     Route: 064
     Dates: start: 20050910, end: 20060113
  2. TERCIAN (CYAMEMAZINE) [Concomitant]
  3. ANAFRANIL [Suspect]
     Indication: DEPRESSION
     Dosage: 185 MG
     Route: 064
     Dates: start: 20050910, end: 20060113
  4. TEGRETOL [Suspect]
     Indication: BIPOLAR I DISORDER
     Route: 064
     Dates: end: 20050909

REACTIONS (10)
  - AGITATION NEONATAL [None]
  - COARCTATION OF THE AORTA [None]
  - CONGENITAL PULMONARY HYPERTENSION [None]
  - DRUG EXPOSURE DURING PREGNANCY [None]
  - DRUG WITHDRAWAL SYNDROME NEONATAL [None]
  - FEVER NEONATAL [None]
  - HEART DISEASE CONGENITAL [None]
  - HYPERTONIA NEONATAL [None]
  - NEONATAL TACHYPNOEA [None]
  - SMALL FOR DATES BABY [None]
